FAERS Safety Report 9786019 (Version 1)
Quarter: 2013Q4

REPORT INFORMATION
  Report Type: Spontaneous
  Country: US (occurrence: US)
  Receive Date: 20131227
  Receipt Date: 20131227
  Transmission Date: 20140711
  Serious: Yes (Other)
  Sender: FDA-Public Use
  Company Number: US-PFIZER INC-2013368038

PATIENT
  Sex: Male

DRUGS (2)
  1. LIPITOR [Suspect]
     Dosage: UNK
     Dates: start: 201201, end: 201312
  2. COUMADINE [Concomitant]
     Dosage: UNK

REACTIONS (2)
  - Atrial fibrillation [Unknown]
  - Eczema [Unknown]
